FAERS Safety Report 8816650 (Version 1)
Quarter: 2012Q4

REPORT INFORMATION
  Report Type: Spontaneous
  Country: US (occurrence: None)
  Receive Date: 20120928
  Receipt Date: 20120928
  Transmission Date: 20130627
  Serious: Yes (Other)
  Sender: FDA-Public Use
  Company Number: 2012SUN00062

PATIENT
  Age: 36 Year
  Sex: Male
  Weight: 115 kg

DRUGS (3)
  1. OLANZAPINE [Suspect]
     Indication: MENTAL DISORDER
     Route: 048
  2. FLUOXETINE [Suspect]
     Route: 048
  3. AMISULPRIDE [Suspect]
     Route: 048

REACTIONS (2)
  - Atrioventricular block first degree [None]
  - Blood prolactin increased [None]
